FAERS Safety Report 6189837-9 (Version None)
Quarter: 2009Q2

REPORT INFORMATION
  Report Type: 
  Country: None (occurrence: None)
  Receive Date: 20090512
  Receipt Date: 20090512
  Transmission Date: 20091009
  Serious: No
  Sender: FDA-Public Use
  Company Number: None

PATIENT
  Age: 42 Year
  Sex: Female
  Weight: 63.5036 kg

DRUGS (1)
  1. TRIAMTERENE 50MG GENEVA [Suspect]
     Indication: HYPERTENSION
     Dosage: 1  1 TIME DAILY
     Dates: start: 20090502, end: 20090510

REACTIONS (2)
  - LOCAL SWELLING [None]
  - RASH [None]
